FAERS Safety Report 7919140-5 (Version None)
Quarter: 2011Q4

REPORT INFORMATION
  Report Type: 
  Country: None (occurrence: None)
  Receive Date: 20111117
  Receipt Date: 20111107
  Transmission Date: 20120403
  Serious: Yes (Hospitalization)
  Sender: FDA-Public Use
  Company Number: US-ROCHE-1011093

PATIENT

DRUGS (1)
  1. HERCEPTIN [Suspect]
     Indication: BLADDER CANCER

REACTIONS (2)
  - ENTEROCOLITIS [None]
  - DEHYDRATION [None]
